FAERS Safety Report 23981089 (Version 1)
Quarter: 2024Q2

REPORT INFORMATION
  Report Type: Spontaneous
  Country: CZ (occurrence: CZ)
  Receive Date: 20240617
  Receipt Date: 20240617
  Transmission Date: 20240716
  Serious: Yes (Other)
  Sender: FDA-Public Use
  Company Number: CZ-BAUSCH-BL-2024-008221

PATIENT
  Sex: Male

DRUGS (6)
  1. DICLOFENAC SODIUM [Suspect]
     Active Substance: DICLOFENAC\DICLOFENAC SODIUM
     Indication: Psoriasis
  2. DICLOFENAC SODIUM [Suspect]
     Active Substance: DICLOFENAC\DICLOFENAC SODIUM
     Indication: Polyarthritis
  3. DICLOFENAC SODIUM [Suspect]
     Active Substance: DICLOFENAC\DICLOFENAC SODIUM
     Indication: Sacroiliitis
  4. IBUPROFEN [Suspect]
     Active Substance: IBUPROFEN
     Indication: Sacroiliitis
  5. IBUPROFEN [Suspect]
     Active Substance: IBUPROFEN
     Indication: Psoriasis
  6. IBUPROFEN [Suspect]
     Active Substance: IBUPROFEN
     Indication: Polyarthritis

REACTIONS (1)
  - Gastrointestinal haemorrhage [Unknown]
